FAERS Safety Report 7122114-8 (Version None)
Quarter: 2010Q4

REPORT INFORMATION
  Report Type: 
  Country: None (occurrence: None)
  Receive Date: 20101124
  Receipt Date: 20101116
  Transmission Date: 20110411
  Serious: Yes (Other)
  Sender: FDA-Public Use
  Company Number: US-ROCHE-742541

PATIENT
  Sex: Female

DRUGS (1)
  1. BONIVA [Suspect]
     Dosage: STARTED SEVERAL YEARS AGO
     Route: 065

REACTIONS (3)
  - CONTUSION [None]
  - FALL [None]
  - KNEE OPERATION [None]
